FAERS Safety Report 21903706 (Version 1)
Quarter: 2023Q1

REPORT INFORMATION
  Report Type: Spontaneous
  Country: US (occurrence: None)
  Receive Date: 20230123
  Receipt Date: 20230123
  Transmission Date: 20230417
  Serious: No
  Sender: FDA-Public Use
  Company Number: None

PATIENT
  Age: 23 Year
  Sex: Male
  Weight: 73.7 kg

DRUGS (1)
  1. RITUXAN [Suspect]
     Active Substance: RITUXIMAB
     Indication: Focal segmental glomerulosclerosis
     Dosage: OTHER FREQUENCY : 1G DAY 1, DAY 15;?
     Route: 041
     Dates: start: 20230120, end: 20230120

REACTIONS (2)
  - Rash papular [None]
  - Rash [None]

NARRATIVE: CASE EVENT DATE: 20230120
